FAERS Safety Report 23075015 (Version 1)
Quarter: 2023Q4

REPORT INFORMATION
  Report Type: Spontaneous
  Country: US (occurrence: US)
  Receive Date: 20231017
  Receipt Date: 20231017
  Transmission Date: 20240109
  Serious: Yes (Other)
  Sender: FDA-Public Use
  Company Number: US-TEVA-2023-US-2935727

PATIENT
  Age: 48 Year
  Sex: Male

DRUGS (7)
  1. SPIRONOLACTONE [Suspect]
     Active Substance: SPIRONOLACTONE
     Indication: Product used for unknown indication
     Dosage: DAILY
     Route: 048
  2. SPIRONOLACTONE [Suspect]
     Active Substance: SPIRONOLACTONE
     Dosage: DAILY
     Route: 048
  3. ESTROPIPATE [Suspect]
     Active Substance: ESTROPIPATE
     Indication: Transgender hormonal therapy
     Dosage: DAILY
     Route: 048
  4. ESTROPIPATE [Suspect]
     Active Substance: ESTROPIPATE
     Dosage: DAILY
     Route: 048
  5. ESTROPIPATE [Suspect]
     Active Substance: ESTROPIPATE
     Dosage: DAILY
     Route: 048
  6. ESTRADIOL [Suspect]
     Active Substance: ESTRADIOL
     Indication: Transgender hormonal therapy
     Route: 062
  7. NORETHINDRONE [Suspect]
     Active Substance: NORETHINDRONE
     Indication: Transgender hormonal therapy
     Dosage: DAILY
     Route: 048

REACTIONS (1)
  - Type 2 diabetes mellitus [Unknown]
